FAERS Safety Report 24702518 (Version 1)
Quarter: 2024Q4

REPORT INFORMATION
  Report Type: Spontaneous
  Country: US (occurrence: None)
  Receive Date: 20241205
  Receipt Date: 20241205
  Transmission Date: 20250115
  Serious: Yes (Hospitalization)
  Sender: Public
  Company Number: None

PATIENT
  Sex: Male

DRUGS (3)
  1. ZARXIO [Suspect]
     Active Substance: FILGRASTIM-SNDZ
     Indication: Agranulocytosis
     Dosage: OTHER QUANTITY : 80/0.8 UG;?OTHER FREQUENCY : 2-3 DAYS A WEEK;?
     Route: 058
     Dates: start: 202101
  2. ZARXIO [Suspect]
     Active Substance: FILGRASTIM-SNDZ
     Indication: Chemotherapy
  3. POMALYST [Concomitant]
     Active Substance: POMALIDOMIDE

REACTIONS (2)
  - Hypersensitivity [None]
  - Therapy change [None]
